FAERS Safety Report 9856020 (Version 1)
Quarter: 2014Q1

REPORT INFORMATION
  Report Type: Spontaneous
  Country: KR (occurrence: KR)
  Receive Date: 20140130
  Receipt Date: 20140130
  Transmission Date: 20141002
  Serious: Yes (Hospitalization)
  Sender: FDA-Public Use
  Company Number: KR-ACTELION-A-CH2014-94066

PATIENT
  Age: 78 Year
  Sex: Female
  Weight: 50 kg

DRUGS (4)
  1. TRACLEER [Suspect]
     Indication: PULMONARY ARTERIAL HYPERTENSION
     Dosage: 62.5 MG, BID
     Route: 048
     Dates: start: 20131223, end: 20140119
  2. TRACLEER [Suspect]
     Dosage: 125 MG, BID
     Route: 048
     Dates: start: 20140120
  3. AMIODARONE [Concomitant]
     Dosage: 400 MG, BID
     Dates: start: 20131116, end: 201401
  4. AMLODIPINE BESILATE [Concomitant]
     Dosage: 2.5 MG, QD
     Dates: start: 20131115, end: 201401

REACTIONS (10)
  - Spinal compression fracture [Recovered/Resolved]
  - Acute pulmonary oedema [Recovered/Resolved]
  - Fall [Recovered/Resolved]
  - Dyspnoea [Recovered/Resolved]
  - Heart rate abnormal [Unknown]
  - Supraventricular extrasystoles [Unknown]
  - Sinus arrest [Unknown]
  - Atrial fibrillation [Unknown]
  - Atrioventricular block [Unknown]
  - Fluid retention [Recovered/Resolved]
